FAERS Safety Report 11680258 (Version 3)
Quarter: 2015Q4

REPORT INFORMATION
  Report Type: Spontaneous
  Country: US (occurrence: US)
  Receive Date: 20151027
  Receipt Date: 20151110
  Transmission Date: 20160304
  Serious: No
  Sender: FDA-Public Use
  Company Number: US-ELI_LILLY_AND_COMPANY-US201005000913

PATIENT
  Sex: Female

DRUGS (7)
  1. VITAMINS [Concomitant]
     Active Substance: VITAMINS
  2. FORTEO [Suspect]
     Active Substance: TERIPARATIDE
     Dosage: 20 UG, QD
  3. FORTEO [Suspect]
     Active Substance: TERIPARATIDE
     Dosage: 20 UG, QD
  4. FORTEO [Suspect]
     Active Substance: TERIPARATIDE
     Dosage: 20 UG, DAILY (1/D)
     Route: 065
  5. FORTEO [Suspect]
     Active Substance: TERIPARATIDE
     Indication: OSTEOPOROSIS
     Dosage: 20 UG, DAILY (1/D)
     Dates: start: 20100209
  6. BABY ASPIRIN [Concomitant]
     Active Substance: ASPIRIN
  7. FORTEO [Suspect]
     Active Substance: TERIPARATIDE
     Dosage: 20 UG, DAILY (1/D)

REACTIONS (21)
  - Haemorrhage [Unknown]
  - Injection site bruising [Not Recovered/Not Resolved]
  - Skin disorder [Unknown]
  - Squamous cell carcinoma [Unknown]
  - Joint injury [Not Recovered/Not Resolved]
  - Thermal burn [Unknown]
  - Skin atrophy [Unknown]
  - Rash pruritic [Unknown]
  - Vascular rupture [Unknown]
  - Rash [Unknown]
  - Pain in extremity [Recovered/Resolved]
  - Peripheral swelling [Recovering/Resolving]
  - Gait disturbance [Unknown]
  - Fall [Recovered/Resolved]
  - Cellulitis [Recovered/Resolved]
  - Rash macular [Unknown]
  - Injection site bruising [Recovered/Resolved]
  - Gout [Unknown]
  - Skin injury [Recovering/Resolving]
  - Neck mass [Unknown]
  - Fatigue [Unknown]

NARRATIVE: CASE EVENT DATE: 2010
